FAERS Safety Report 4527229-6 (Version None)
Quarter: 2004Q4

REPORT INFORMATION
  Report Type: 
  Country: None (occurrence: None)
  Receive Date: 20041215
  Receipt Date: 20041206
  Transmission Date: 20050328
  Serious: Yes (Death, Hospitalization)
  Sender: FDA-Public Use
  Company Number: PHHO2004IT17251

PATIENT
  Age: 35 Year
  Sex: Male
  Weight: 65 kg

DRUGS (3)
  1. PREDNISONE [Suspect]
     Indication: LUNG TRANSPLANT
     Dosage: 12.5 MG, QD
     Dates: start: 20041106
  2. NEORAL [Suspect]
     Indication: RENAL TRANSPLANT
     Dosage: 275MG DAILY
     Dates: start: 20040929
  3. SDZ RAD [Suspect]
     Indication: LUNG TRANSPLANT
     Dosage: 1.5 MG/DAY
     Route: 048
     Dates: start: 20040929, end: 20041204

REACTIONS (9)
  - ACUTE RESPIRATORY FAILURE [None]
  - BACK PAIN [None]
  - BRONCHIECTASIS [None]
  - DISSEMINATED INTRAVASCULAR COAGULATION [None]
  - HYPERSPLENISM ACQUIRED [None]
  - LUNG TRANSPLANT REJECTION [None]
  - PHARYNGOLARYNGEAL PAIN [None]
  - RESPIRATORY FAILURE [None]
  - SEPSIS [None]
